FAERS Safety Report 17100534 (Version 2)
Quarter: 2019Q4

REPORT INFORMATION
  Report Type: Report from Study
  Country: CA (occurrence: CA)
  Receive Date: 20191202
  Receipt Date: 20191210
  Transmission Date: 20200122
  Serious: Yes (Hospitalization)
  Sender: FDA-Public Use
  Company Number: CA-TAKEDA-2019TUS068146

PATIENT
  Age: 88 Year
  Sex: Male

DRUGS (9)
  1. VEDOLIZUMAB [Suspect]
     Active Substance: VEDOLIZUMAB
     Indication: CROHN^S DISEASE
     Dosage: 300 MILLIGRAM
     Route: 042
     Dates: start: 20190625
  2. JENTADUETO [Concomitant]
     Active Substance: LINAGLIPTIN\METFORMIN HYDROCHLORIDE
     Dosage: UNK
  3. D-TABS [Concomitant]
     Active Substance: CHOLECALCIFEROL
     Dosage: 10000 INTERNATIONAL UNIT
  4. APO GLICLAZIDE [Concomitant]
     Dosage: 30 MILLIGRAM
  5. PRO CAL [Concomitant]
     Dosage: 500 MILLIGRAM, BID
  6. SANDOZ RIVASTIGMINE [Concomitant]
     Dosage: 9.5 MILLIGRAM, QD
     Route: 062
  7. PRO-QUETIAPINE [Concomitant]
     Dosage: 25 MILLIGRAM, QD
  8. LAX-A-DAY [Concomitant]
     Dosage: UNK
  9. RIVA ATORVASTATIN [Concomitant]
     Dosage: 10 MILLIGRAM, QD

REACTIONS (5)
  - Dyspnoea [Unknown]
  - Chest pain [Unknown]
  - Blood pressure fluctuation [Unknown]
  - Oropharyngeal pain [Unknown]
  - Dyspepsia [Unknown]
